FAERS Safety Report 9412116 (Version 4)
Quarter: 2013Q4

REPORT INFORMATION
  Report Type: Report from Study
  Country: US (occurrence: US)
  Receive Date: 20130722
  Receipt Date: 20131219
  Transmission Date: 20140711
  Serious: Yes (Hospitalization)
  Sender: FDA-Public Use
  Company Number: US-ROCHE-1250104

PATIENT
  Age: 57 Year
  Sex: Female
  Weight: 43.58 kg

DRUGS (3)
  1. XELODA [Suspect]
     Indication: COLON CANCER
     Dosage: 2 WEEKS ON, 1 WEEK OFF
     Route: 048
     Dates: start: 201302
  2. XELODA [Suspect]
     Indication: HEPATIC CANCER
     Dosage: 5 TABLETS PER DAY
     Route: 048
  3. XELODA [Suspect]
     Indication: COLORECTAL CANCER METASTATIC
     Dosage: 3 TABLETS PER DAY
     Route: 048

REACTIONS (9)
  - Metastatic neoplasm [Recovered/Resolved]
  - Pneumonia [Recovered/Resolved]
  - Blood potassium decreased [Recovered/Resolved]
  - Pain [Not Recovered/Not Resolved]
  - Abasia [Recovered/Resolved]
  - Chest discomfort [Recovered/Resolved]
  - Dyspnoea [Recovered/Resolved]
  - Asthenia [Recovered/Resolved]
  - Disease progression [Unknown]
